FAERS Safety Report 6886606 (Version 7)
Quarter: 2014Q1

REPORT INFORMATION
  Report Type: Spontaneous
  Country: US (occurrence: US)
  Receive Date: 20080606
  Receipt Date: 20140115
  Transmission Date: 20141002
  Serious: Yes (Hospitalization)
  Sender: FDA-Public Use
  Company Number: US-BIOGENIDEC-2008BI013770

PATIENT
  Age: 51 Year
  Sex: Female
  Weight: 78 kg

DRUGS (3)
  1. AVONEX [Suspect]
     Indication: MULTIPLE SCLEROSIS
     Route: 030
     Dates: start: 19990611, end: 200410
  2. AVONEX [Suspect]
     Indication: MULTIPLE SCLEROSIS
     Route: 030
     Dates: start: 200410, end: 200712
  3. AVONEX [Suspect]
     Indication: MULTIPLE SCLEROSIS
     Route: 030
     Dates: start: 200712, end: 20100301

REACTIONS (12)
  - Goitre [Recovered/Resolved]
  - Vocal cord polyp [Not Recovered/Not Resolved]
  - Thyroid disorder [Recovered/Resolved]
  - Drug intolerance [Unknown]
  - Burning sensation [Unknown]
  - Tremor [Unknown]
  - General symptom [Recovered/Resolved]
  - Influenza [Recovered/Resolved]
  - Neuropathy peripheral [Unknown]
  - Thyroid function test abnormal [Recovered/Resolved]
  - Influenza like illness [Recovered/Resolved]
  - Arthralgia [Recovered/Resolved]
